FAERS Safety Report 18638278 (Version 1)
Quarter: 2020Q4

REPORT INFORMATION
  Report Type: Spontaneous
  Country: US (occurrence: US)
  Receive Date: 20201218
  Receipt Date: 20201218
  Transmission Date: 20210114
  Serious: No
  Sender: FDA-Public Use
  Company Number: US-009507513-2012USA008075

PATIENT
  Age: 60 Year
  Sex: Female
  Weight: 122.47 kg

DRUGS (4)
  1. DECADRON [Suspect]
     Active Substance: DEXAMETHASONE
     Dosage: HALF OF 0.5 MG TABLET ONCE A DAY
     Route: 048
     Dates: start: 202006
  2. METHOTREXATE. [Concomitant]
     Active Substance: METHOTREXATE
     Dosage: 25 MILLIGRAM SHOTS, QW
  3. HYDROCORTISONE. [Suspect]
     Active Substance: HYDROCORTISONE
     Indication: ADDISON^S DISEASE
     Dosage: 5MG PILL (OVAL WHITE PILL MARKED ^PS^). REPORTED SHE DOES RANGE DOSING, BETWEEN 10MG TO 35MG, BASED
     Route: 048
     Dates: start: 202011
  4. GLOBULIN, IMMUNE [Concomitant]
     Active Substance: HUMAN IMMUNOGLOBULIN G
     Dosage: 20 MILLIGRAM
     Dates: start: 2018

REACTIONS (3)
  - Crying [Not Recovered/Not Resolved]
  - Drug intolerance [Unknown]
  - Feeling abnormal [Not Recovered/Not Resolved]

NARRATIVE: CASE EVENT DATE: 202006
